FAERS Safety Report 25989812 (Version 1)
Quarter: 2025Q4

REPORT INFORMATION
  Report Type: Report from Study
  Country: GB (occurrence: GB)
  Receive Date: 20251103
  Receipt Date: 20251103
  Transmission Date: 20260117
  Serious: Yes (Other)
  Sender: TEVA
  Company Number: GB-TEVA-VS-3387445

PATIENT
  Age: 78 Year
  Sex: Male

DRUGS (1)
  1. OCTREOTIDE [Suspect]
     Active Substance: OCTREOTIDE
     Indication: Product used for unknown indication
     Route: 065

REACTIONS (8)
  - Squamous cell carcinoma of skin [Unknown]
  - Back pain [Unknown]
  - Abdominal pain upper [Unknown]
  - Pain in extremity [Unknown]
  - Insomnia [Unknown]
  - Constipation [Unknown]
  - Diarrhoea [Unknown]
  - Abdominal distension [Unknown]
